FAERS Safety Report 9240513 (Version 1)
Quarter: 2013Q1

REPORT INFORMATION
  Report Type: Spontaneous
  Country: US (occurrence: None)
  Receive Date: 20121120
  Receipt Date: 20121120
  Transmission Date: 20140127
  Serious: No
  Sender: FDA-Public Use
  Company Number: 1000037927

PATIENT
  Age: 48 Year
  Sex: Male

DRUGS (5)
  1. VIIBRYD [Suspect]
     Indication: DEPRESSION
     Dosage: 10 MG (10 MG, 1 IN 1 D), ORAL
     Route: 048
     Dates: start: 20120804, end: 20120810
  2. VIIBRYD [Suspect]
     Indication: OBSESSIVE-COMPULSIVE DISORDER
     Dosage: 10 MG (10 MG, 1 IN 1 D), ORAL
     Route: 048
     Dates: start: 20120804, end: 20120810
  3. CITALOPRAM (CITALOPRAM HYDROBROMIDE) (CITALOPRAM HYDROBROMIDE) [Concomitant]
  4. XANAX (ALPRAZOLAM) [Concomitant]
  5. CLONIDINE (CLONIDINE) (CLONIDINE) [Concomitant]

REACTIONS (6)
  - Paraesthesia [None]
  - Lethargy [None]
  - Hyperhidrosis [None]
  - Diarrhoea [None]
  - Agitation [None]
  - Gait disturbance [None]
